FAERS Safety Report 8206620-0 (Version None)
Quarter: 2012Q1

REPORT INFORMATION
  Report Type: 
  Country: None (occurrence: None)
  Receive Date: 20120314
  Receipt Date: 20120302
  Transmission Date: 20120608
  Serious: Yes (Hospitalization)
  Sender: FDA-Public Use
  Company Number: US-BRISTOL-MYERS SQUIBB COMPANY-16429797

PATIENT
  Age: 61 Year
  Sex: Male
  Weight: 90 kg

DRUGS (3)
  1. CYTARABINE [Suspect]
     Indication: ACUTE MYELOID LEUKAEMIA
     Dates: start: 20120210, end: 20120213
  2. PRAVASTATIN SODIUM [Suspect]
     Indication: ACUTE MYELOID LEUKAEMIA
     Dates: start: 20120207, end: 20120214
  3. IDARUBICIN HCL [Suspect]
     Indication: ACUTE MYELOID LEUKAEMIA
     Dates: start: 20120210, end: 20120212

REACTIONS (3)
  - VIRAL INFECTION [None]
  - COGNITIVE DISORDER [None]
  - HAEMORRHAGE INTRACRANIAL [None]
